FAERS Safety Report 6168985-3 (Version None)
Quarter: 2009Q2

REPORT INFORMATION
  Report Type: 
  Country: None (occurrence: None)
  Receive Date: 20090424
  Receipt Date: 20090424
  Transmission Date: 20091009
  Serious: No
  Sender: FDA-Public Use
  Company Number: None

PATIENT
  Age: 56 Year
  Sex: Female
  Weight: 68.0396 kg

DRUGS (2)
  1. SINGULAIR [Suspect]
     Indication: ASTHMA
     Dosage: 1 TABLET A DAILY PO
     Route: 048
     Dates: start: 20090311, end: 20090402
  2. SINGULAIR [Suspect]
     Indication: MULTIPLE ALLERGIES
     Dosage: 1 TABLET A DAILY PO
     Route: 048
     Dates: start: 20090311, end: 20090402

REACTIONS (6)
  - DEAFNESS UNILATERAL [None]
  - DIZZINESS [None]
  - HEADACHE [None]
  - NO THERAPEUTIC RESPONSE [None]
  - TINNITUS [None]
  - VISUAL IMPAIRMENT [None]
